FAERS Safety Report 4353820-6 (Version None)
Quarter: 2004Q2

REPORT INFORMATION
  Report Type: 
  Country: None (occurrence: None)
  Receive Date: 20040430
  Receipt Date: 20040419
  Transmission Date: 20050107
  Serious: Yes (Other)
  Sender: FDA-Public Use
  Company Number: 2004026445

PATIENT
  Age: 42 Year
  Sex: Female
  Weight: 76 kg

DRUGS (14)
  1. NEURONTIN [Suspect]
     Indication: PAIN
     Dosage: 900 MG (UNKNOWN), ORAL
     Route: 048
     Dates: start: 20040315, end: 20040318
  2. PONSTEL [Suspect]
     Indication: PAIN
     Dosage: 1500 MG (UNKNOWN), ORAL
     Route: 048
     Dates: start: 20040315, end: 20040324
  3. CEFEPIME HYDROCHLORIDE) (CEFEPIME HYDROCHLORIDE) [Suspect]
     Indication: ARTHRITIS BACTERIAL
     Dosage: 6 GRAM (UNKNOWN), INTRAVENOUS
     Route: 042
     Dates: start: 20040229, end: 20040318
  4. OMEPRAZOLE [Suspect]
     Indication: ILL-DEFINED DISORDER
     Dosage: 40 MG (UNKNOWN), ORAL
     Dates: start: 20040313, end: 20040318
  5. OXYCODONE HCL [Concomitant]
  6. MORPHINE [Concomitant]
  7. KETOROLAC TROMETHAMINE [Concomitant]
  8. CO-DAFALGAN (CODEINE PHOSPHATE HEMIHYDRATE PARACETAMOL) [Concomitant]
  9. DROPERIDOL [Concomitant]
  10. DICLOFENAC SODIUM [Concomitant]
  11. AMITRIPTYLINE HYDROCHLORIDE [Concomitant]
  12. BROMAZEPAM (BROMAZEPAM) [Concomitant]
  13. CLORAZEPATE DIPOTASSIUM [Concomitant]
  14. VANCOMYCIN HCL [Concomitant]

REACTIONS (2)
  - AGRANULOCYTOSIS [None]
  - LEUKOPENIA [None]
